FAERS Safety Report 9861206 (Version 2)
Quarter: 2014Q1

REPORT INFORMATION
  Report Type: Spontaneous
  Country: JP (occurrence: JP)
  Receive Date: 20140202
  Receipt Date: 20140202
  Transmission Date: 20141002
  Serious: No
  Sender: FDA-Public Use
  Company Number: JP-ALLERGAN-1304149US

PATIENT
  Age: 73 Year
  Sex: Male

DRUGS (4)
  1. BOTOX [Suspect]
     Indication: BLEPHAROSPASM
     Dosage: 25 UNITS, SINGLE
     Route: 030
     Dates: start: 20130222, end: 20130222
  2. MYTEAR [Concomitant]
     Indication: DRY EYE
     Route: 031
  3. VITACOBAL [Concomitant]
     Indication: DRY EYE
     Route: 031
  4. LACRIMIN [Concomitant]
     Indication: DRY EYE
     Route: 031

REACTIONS (1)
  - Eye movement disorder [Unknown]
